FAERS Safety Report 16868265 (Version 1)
Quarter: 2019Q3

REPORT INFORMATION
  Report Type: Spontaneous
  Country: US (occurrence: US)
  Receive Date: 20190930
  Receipt Date: 20190930
  Transmission Date: 20191005
  Serious: Yes (Other)
  Sender: FDA-Public Use
  Company Number: US-SLATE RUN PHARMACEUTICALS-SLTR-AE-19-91

PATIENT
  Age: 57 Year
  Sex: Male

DRUGS (3)
  1. PREGABALIN. [Concomitant]
     Active Substance: PREGABALIN
  2. VANCOMYCIN HCL FOR INJECTION USP [Suspect]
     Active Substance: VANCOMYCIN HYDROCHLORIDE
     Indication: STAPHYLOCOCCAL INFECTION
     Dosage: GIVEN OVER 2.5 HOURS INSTEAD OF THE STANDARD 1.25 HOURS
     Route: 042
  3. CLONIDINE. [Concomitant]
     Active Substance: CLONIDINE

REACTIONS (1)
  - Arteriospasm coronary [Recovered/Resolved]
